FAERS Safety Report 11323695 (Version 1)
Quarter: 2015Q3

REPORT INFORMATION
  Report Type: Spontaneous
  Country: US (occurrence: None)
  Receive Date: 20150729
  Receipt Date: 20150729
  Transmission Date: 20151125
  Serious: Yes (Other)
  Sender: FDA-Public Use
  Company Number: None

PATIENT
  Age: 60 Year
  Sex: Female
  Weight: 85.2 kg

DRUGS (15)
  1. NABUMAETONE [Concomitant]
  2. OMEPRAZOLE. [Concomitant]
     Active Substance: OMEPRAZOLE
  3. PREMARIN CREAM [Concomitant]
  4. CYMBALTA [Concomitant]
     Active Substance: DULOXETINE HYDROCHLORIDE
  5. SOLIFENACIN [Concomitant]
     Active Substance: SOLIFENACIN
  6. PILOCARPINE. [Concomitant]
     Active Substance: PILOCARPINE
  7. OXYCODONE [Concomitant]
     Active Substance: OXYCODONE
  8. AMBIEN [Concomitant]
     Active Substance: ZOLPIDEM TARTRATE
  9. LOSARTAN. [Concomitant]
     Active Substance: LOSARTAN
  10. GABAPENTIN. [Concomitant]
     Active Substance: GABAPENTIN
  11. WARFARIN [Concomitant]
     Active Substance: WARFARIN
  12. AMITRIPTYLINE [Concomitant]
     Active Substance: AMITRIPTYLINE
  13. ECULIZUMAB 300MG ALEXION [Suspect]
     Active Substance: ECULIZUMAB
     Indication: PAROXYSMAL NOCTURNAL HAEMOGLOBINURIA
     Route: 042
  14. CEFEPIME [Concomitant]
     Active Substance: CEFEPIME HYDROCHLORIDE
  15. FOLIC ACID. [Concomitant]
     Active Substance: FOLIC ACID

REACTIONS (2)
  - Myoclonus [None]
  - Fatigue [None]

NARRATIVE: CASE EVENT DATE: 20150728
